FAERS Safety Report 20428130 (Version 1)
Quarter: 2022Q1

REPORT INFORMATION
  Report Type: Spontaneous
  Country: AU (occurrence: None)
  Receive Date: 20220204
  Receipt Date: 20220204
  Transmission Date: 20220424
  Serious: Yes (Other)
  Sender: FDA-Public Use
  Company Number: AU-ROCHE-3015289

PATIENT

DRUGS (1)
  1. OCRELIZUMAB [Suspect]
     Active Substance: OCRELIZUMAB
     Indication: Product used for unknown indication
     Route: 042
     Dates: start: 20190401

REACTIONS (2)
  - Multiple congenital abnormalities [Unknown]
  - Holoprosencephaly [Unknown]

NARRATIVE: CASE EVENT DATE: 20211202
